FAERS Safety Report 17152061 (Version 2)
Quarter: 2020Q2

REPORT INFORMATION
  Report Type: Spontaneous
  Country: US (occurrence: US)
  Receive Date: 20191213
  Receipt Date: 20200605
  Transmission Date: 20200713
  Serious: Yes (Hospitalization, Other)
  Sender: FDA-Public Use
  Company Number: US-UNITED THERAPEUTICS-UNT-2019-020338

PATIENT
  Age: 60 Year
  Sex: Female
  Weight: 58.73 kg

DRUGS (1)
  1. REMODULIN [Suspect]
     Active Substance: TREPROSTINIL
     Indication: PULMONARY ARTERIAL HYPERTENSION
     Dosage: 0.120 ?G/KG, CONTINUING
     Route: 058
     Dates: start: 20180521

REACTIONS (5)
  - Concussion [Unknown]
  - Brain injury [Unknown]
  - Fall [Recovered/Resolved with Sequelae]
  - Headache [Unknown]
  - Road traffic accident [Unknown]

NARRATIVE: CASE EVENT DATE: 20191203
